FAERS Safety Report 7536498-X (Version None)
Quarter: 2011Q2

REPORT INFORMATION
  Report Type: 
  Country: None (occurrence: None)
  Receive Date: 20110524
  Receipt Date: 20110207
  Transmission Date: 20111010
  Serious: Yes (Other)
  Sender: FDA-Public Use
  Company Number: 027070

PATIENT
  Sex: Female
  Weight: 79.3795 kg

DRUGS (10)
  1. LISINOPRIL [Concomitant]
  2. ENABLEX /01760401/ [Concomitant]
  3. NEXIUM [Concomitant]
  4. COUMADIN [Concomitant]
  5. FOLIC ACID [Concomitant]
  6. PLAQUENIL [Concomitant]
  7. INDERAL LA [Concomitant]
  8. LASIX [Concomitant]
  9. CIMZIA [Suspect]
     Indication: RHEUMATOID ARTHRITIS
     Dosage: (200 MG 1X/2 WEEKS SUBCUTANEOUS) ; (200 MG 1X/2 WEEKS SUBCUTANEOUS)
     Route: 058
     Dates: start: 20110206
  10. CIMZIA [Suspect]
     Indication: RHEUMATOID ARTHRITIS
     Dosage: (200 MG 1X/2 WEEKS SUBCUTANEOUS) ; (200 MG 1X/2 WEEKS SUBCUTANEOUS)
     Route: 058
     Dates: start: 20100101, end: 20110202

REACTIONS (3)
  - RASH GENERALISED [None]
  - INJECTION SITE REACTION [None]
  - SINUSITIS [None]
